FAERS Safety Report 10204952 (Version 2)
Quarter: 2014Q2

REPORT INFORMATION
  Report Type: Spontaneous
  Country: US (occurrence: US)
  Receive Date: 20140529
  Receipt Date: 20140613
  Transmission Date: 20141212
  Serious: No
  Sender: FDA-Public Use
  Company Number: US-JNJFOC-20140511784

PATIENT
  Age: 50 Year
  Sex: Female

DRUGS (17)
  1. SANDOZ FENTANYL TRANSDERMAL SYSTEM [Suspect]
     Indication: FIBROMYALGIA
     Route: 062
     Dates: start: 201401
  2. OXYCODONE [Concomitant]
     Indication: PAIN
     Route: 048
     Dates: start: 201401
  3. ALPRAZOLAM [Concomitant]
     Indication: ANXIETY
     Route: 048
     Dates: start: 201402
  4. GABAPENTIN [Concomitant]
     Indication: NERVE INJURY
     Route: 048
     Dates: start: 2002
  5. GABAPENTIN [Concomitant]
     Indication: ARTHRALGIA
     Route: 048
     Dates: start: 2002
  6. NEXIUM [Concomitant]
     Indication: DYSPEPSIA
     Route: 048
     Dates: start: 201404
  7. FLEXERIL [Concomitant]
     Indication: MUSCLE SPASMS
     Route: 048
     Dates: start: 2007
  8. SERTRALINE HCL [Concomitant]
     Indication: DEPRESSION
     Route: 048
  9. ATENOLOL/CHLORTALIDONE [Concomitant]
     Indication: DIURETIC THERAPY
     Dosage: 50-25 MG
     Route: 048
  10. ATENOLOL/CHLORTALIDONE [Concomitant]
     Indication: BLOOD PRESSURE
     Dosage: 50-25 MG
     Route: 048
  11. STRATTERA [Concomitant]
     Indication: ATTENTION DEFICIT/HYPERACTIVITY DISORDER
     Dosage: 50-25 MG
     Route: 048
     Dates: start: 201402
  12. DICYCLOMINE [Concomitant]
     Indication: IRRITABLE BOWEL SYNDROME
     Route: 048
  13. HYALURONIC ACID [Concomitant]
     Route: 065
  14. AMBIEN [Concomitant]
     Indication: INSOMNIA
     Route: 048
     Dates: start: 2004
  15. NYSTOP [Concomitant]
     Indication: FUNGAL INFECTION
     Route: 061
  16. FLUTICASONE PROPIONATE [Concomitant]
     Indication: MULTIPLE ALLERGIES
     Route: 045
     Dates: start: 201404
  17. COMBIVENT RESPIMAT [Concomitant]
     Indication: CHRONIC OBSTRUCTIVE PULMONARY DISEASE
     Route: 048

REACTIONS (8)
  - Weight decreased [Not Recovered/Not Resolved]
  - Product quality issue [Unknown]
  - Poor quality drug administered [Not Recovered/Not Resolved]
  - Inappropriate schedule of drug administration [Not Recovered/Not Resolved]
  - Drug dose omission [Not Recovered/Not Resolved]
  - Product adhesion issue [Unknown]
  - Product quality issue [Unknown]
  - Product quality issue [Unknown]
